FAERS Safety Report 9118937 (Version 1)
Quarter: 2013Q1

REPORT INFORMATION
  Report Type: Spontaneous
  Country: US (occurrence: US)
  Receive Date: 20130226
  Receipt Date: 20130226
  Transmission Date: 20140127
  Serious: Yes (Other)
  Sender: FDA-Public Use
  Company Number: PHEH2013US004547

PATIENT
  Sex: 0

DRUGS (1)
  1. STARLIX [Suspect]

REACTIONS (1)
  - Cystitis [Unknown]
